FAERS Safety Report 21192626 (Version 1)
Quarter: 2022Q3

REPORT INFORMATION
  Report Type: Spontaneous
  Country: FR (occurrence: FR)
  Receive Date: 20220810
  Receipt Date: 20220810
  Transmission Date: 20221027
  Serious: Yes (Other)
  Sender: FDA-Public Use
  Company Number: FR-BAYER-2022P000782

PATIENT
  Age: 73 Year
  Sex: Male

DRUGS (3)
  1. XARELTO [Suspect]
     Active Substance: RIVAROXABAN
     Indication: Deep vein thrombosis
     Dosage: 20 MG
     Route: 048
     Dates: start: 2020
  2. XARELTO [Suspect]
     Active Substance: RIVAROXABAN
     Indication: Atrial fibrillation
     Dosage: 10 MG
     Route: 048
     Dates: start: 2020
  3. XARELTO [Suspect]
     Active Substance: RIVAROXABAN
     Indication: Deep vein thrombosis
     Dosage: 20 MG
     Route: 048
     Dates: start: 20210412, end: 20220411

REACTIONS (6)
  - Fall [Unknown]
  - COVID-19 [Unknown]
  - Deep vein thrombosis [Not Recovered/Not Resolved]
  - Atrial fibrillation [Unknown]
  - Atrial fibrillation [Unknown]
  - Atrial thrombosis [Unknown]
